FAERS Safety Report 11129001 (Version 1)
Quarter: 2015Q2

REPORT INFORMATION
  Report Type: Spontaneous
  Country: PL (occurrence: PL)
  Receive Date: 20150521
  Receipt Date: 20150521
  Transmission Date: 20150821
  Serious: Yes (Other)
  Sender: FDA-Public Use
  Company Number: PL-TEVA-563720ISR

PATIENT
  Age: 76 Year
  Sex: Male

DRUGS (3)
  1. DIUVER [Suspect]
     Active Substance: TORSEMIDE
     Indication: HYPERTENSION
  2. BISOCARD [Suspect]
     Active Substance: BISOPROLOL
     Indication: HYPERTENSION
  3. KALIPOZ PROLONGATUM TABLETKI [Suspect]
     Active Substance: POTASSIUM CHLORIDE
     Indication: HYPERTENSION

REACTIONS (4)
  - Monoplegia [Unknown]
  - Gait disturbance [Unknown]
  - Hypotonia [Unknown]
  - Carotid artery stenosis [Unknown]
